FAERS Safety Report 7800542 (Version 2)
Quarter: 2013Q1

REPORT INFORMATION
  Report Type: Spontaneous
  Country: ES (occurrence: ES)
  Receive Date: 20110204
  Receipt Date: 20130207
  Transmission Date: 20140127
  Serious: Yes (Other)
  Sender: FDA-Public Use
  Company Number: ES-PFIZER INC-2011024901

PATIENT
  Age: 63 Year
  Sex: Female

DRUGS (2)
  1. PIPERACILLIN/TAZOBACTAM [Suspect]
     Indication: URINARY TRACT INFECTION
     Dosage: 1500 MG/DAY
     Route: 042
  2. PHENYTOIN SODIUM [Suspect]
     Dosage: 300 MG/DAY

REACTIONS (1)
  - Status epilepticus [Recovered/Resolved]
